FAERS Safety Report 13445632 (Version 1)
Quarter: 2017Q2

REPORT INFORMATION
  Report Type: Spontaneous
  Country: US (occurrence: US)
  Receive Date: 20170415
  Receipt Date: 20170415
  Transmission Date: 20170830
  Serious: Yes (Hospitalization)
  Sender: FDA-Public Use
  Company Number: US-JNJFOC-20170413194

PATIENT
  Age: 24 Month
  Sex: Male

DRUGS (2)
  1. ROGAINE [Suspect]
     Active Substance: MINOXIDIL
     Indication: ACCIDENTAL EXPOSURE TO PRODUCT
     Route: 048
  2. ROGAINE [Suspect]
     Active Substance: MINOXIDIL
     Route: 048

REACTIONS (3)
  - Incorrect route of drug administration [Unknown]
  - Adverse event [Unknown]
  - Accidental exposure to product [Unknown]
